FAERS Safety Report 13473638 (Version 1)
Quarter: 2017Q2

REPORT INFORMATION
  Report Type: Spontaneous
  Country: US (occurrence: US)
  Receive Date: 20170424
  Receipt Date: 20170424
  Transmission Date: 20170830
  Serious: Yes (Hospitalization, Other)
  Sender: FDA-Public Use
  Company Number: US-TEVA-762035USA

PATIENT
  Age: 26 Year
  Sex: Male
  Weight: 71 kg

DRUGS (12)
  1. SODIUM CHLORIDE. [Suspect]
     Active Substance: SODIUM CHLORIDE
     Dosage: 0.9% 3200ML
     Route: 065
  2. ONYX 34 (SALICYLIC ACID) [Suspect]
     Active Substance: SALICYLIC ACID
     Indication: INTERVENTIONAL PROCEDURE
     Route: 065
  3. LIDOCAINE. [Concomitant]
     Active Substance: LIDOCAINE
     Indication: LOCAL ANAESTHESIA
     Dosage: 1%; 250MG
     Route: 065
  4. ESMOLOL [Concomitant]
     Active Substance: ESMOLOL HYDROCHLORIDE
     Indication: TACHYCARDIA
     Dosage: 100 TO 250 MCGKG-1MIN-1
     Route: 050
  5. PHENYLEPHRINE [Concomitant]
     Active Substance: PHENYLEPHRINE\PHENYLEPHRINE HYDROCHLORIDE
     Indication: HYPOTENSION
     Dosage: 15 TO 60 MICROG/MIN
     Route: 050
  6. PROPOFOL. [Suspect]
     Active Substance: PROPOFOL
     Indication: SEDATION
     Dosage: 25 TO 55 MCG/KG/MIN
     Route: 050
  7. REMIFENTANIL [Suspect]
     Active Substance: REMIFENTANIL
     Indication: SEDATION
     Dosage: 0.05 TO 0.12 MCG/KG/MIN
     Route: 050
  8. MANNITOL. [Suspect]
     Active Substance: MANNITOL
     Indication: POLYURIA
     Route: 040
  9. EPINEPHRINE. [Concomitant]
     Active Substance: EPINEPHRINE
     Indication: LOCAL ANAESTHESIA
     Dosage: 1:200000
     Route: 065
  10. MAGNESIUM CHLORIDE, POTASSIUM CHLORIDE, SODIUM ACETATE, SODIUM CHLORID [Concomitant]
     Route: 065
  11. LEVETIRACETAM. [Concomitant]
     Active Substance: LEVETIRACETAM
     Indication: ARTERIOVENOUS MALFORMATION
     Route: 065
  12. TETRACAINE. [Concomitant]
     Active Substance: TETRACAINE
     Indication: LOCAL ANAESTHESIA
     Dosage: 1%; 50MG
     Route: 065

REACTIONS (6)
  - Pulmonary embolism [Recovering/Resolving]
  - Hypoxia [Recovering/Resolving]
  - Embolism arterial [Recovering/Resolving]
  - Blood sodium increased [Recovering/Resolving]
  - Pulmonary oedema [Recovering/Resolving]
  - Atelectasis [Recovering/Resolving]
